FAERS Safety Report 5763748-2 (Version None)
Quarter: 2008Q2

REPORT INFORMATION
  Report Type: 
  Country: None (occurrence: None)
  Receive Date: 20080529
  Receipt Date: 20080415
  Transmission Date: 20081010
  Serious: No
  Sender: FDA-Public Use
  Company Number: US-JNJFOC-20080404429

PATIENT
  Sex: Male
  Weight: 114.3065 kg

DRUGS (5)
  1. DACOGEN [Suspect]
     Indication: MYELODYSPLASTIC SYNDROME
     Dosage: 48 MG, 1 IN 28 DAY, INTRAVENOUS
     Route: 042
     Dates: start: 20071126
  2. LEVOTHYROXINE (LEVOTHYROXINE) UNSPECIFIED [Concomitant]
  3. PRILOSEC (OMEPRAZOLE) UNSPECIFIED [Concomitant]
  4. ASA (ACETYLSALICYLIC ACID) UNSPECIFIED [Concomitant]
  5. SENNA (SENNA) UNSPECIFIED) [Concomitant]

REACTIONS (1)
  - HEADACHE [None]
